FAERS Safety Report 9262754 (Version 1)
Quarter: 2013Q2

REPORT INFORMATION
  Report Type: Spontaneous
  Country: US (occurrence: US)
  Receive Date: 20130430
  Receipt Date: 20130430
  Transmission Date: 20140414
  Serious: No
  Sender: FDA-Public Use
  Company Number: US-PFIZER INC-2013129715

PATIENT
  Sex: 0

DRUGS (1)
  1. LEVOXYL [Suspect]
     Dosage: 88 UG, UNK

REACTIONS (3)
  - Circumstance or information capable of leading to medication error [Unknown]
  - Diarrhoea [Unknown]
  - Product formulation issue [Unknown]
